FAERS Safety Report 10587421 (Version 2)
Quarter: 2014Q4

REPORT INFORMATION
  Report Type: Spontaneous
  Country: US (occurrence: US)
  Receive Date: 20141117
  Receipt Date: 20141231
  Transmission Date: 20150529
  Serious: No
  Sender: FDA-Public Use
  Company Number: US-PFIZER INC-2014315508

PATIENT
  Age: 67 Year
  Sex: Female
  Weight: 59 kg

DRUGS (2)
  1. NICOTROL [Suspect]
     Active Substance: NICOTINE
     Indication: SMOKING CESSATION THERAPY
     Dosage: 3 TO 4 CARTRIDGES A DAY
     Route: 055
     Dates: start: 2008
  2. NICOTROL [Suspect]
     Active Substance: NICOTINE
     Dosage: 10 MG, ONE CARTRIDGE A DAY
     Route: 055

REACTIONS (1)
  - Drug ineffective [Unknown]
